FAERS Safety Report 13570185 (Version 6)
Quarter: 2017Q4

REPORT INFORMATION
  Report Type: Spontaneous
  Country: US (occurrence: US)
  Receive Date: 20170522
  Receipt Date: 20171002
  Transmission Date: 20180320
  Serious: Yes (Other)
  Sender: FDA-Public Use
  Company Number: US-ALLERGAN-1720231US

PATIENT
  Age: 78 Year
  Sex: Male

DRUGS (3)
  1. INSULIN [Concomitant]
     Active Substance: INSULIN NOS
     Indication: DIABETES MELLITUS
  2. COMBIGAN [Suspect]
     Active Substance: BRIMONIDINE TARTRATE\TIMOLOL MALEATE
     Indication: GLAUCOMA
     Dosage: 2 GTT, BID
     Route: 047
     Dates: start: 2007, end: 201703
  3. COMBIGAN [Suspect]
     Active Substance: BRIMONIDINE TARTRATE\TIMOLOL MALEATE
     Dosage: 2 GTT, BID
     Route: 047
     Dates: start: 20170609

REACTIONS (6)
  - Eye irritation [Recovered/Resolved]
  - Blindness transient [Recovering/Resolving]
  - Ocular hyperaemia [Recovered/Resolved]
  - Visual impairment [Unknown]
  - Intraocular pressure increased [Not Recovered/Not Resolved]
  - Reaction to preservatives [Recovered/Resolved]

NARRATIVE: CASE EVENT DATE: 201701
